FAERS Safety Report 7093958-6 (Version None)
Quarter: 2010Q4

REPORT INFORMATION
  Report Type: 
  Country: None (occurrence: None)
  Receive Date: 20101101
  Receipt Date: 20101027
  Transmission Date: 20110411
  Serious: Yes (Other)
  Sender: FDA-Public Use
  Company Number: 2010SP057323

PATIENT
  Age: 80 Year
  Sex: Female

DRUGS (1)
  1. TEMODAL [Suspect]
     Indication: PRODUCT USED FOR UNKNOWN INDICATION
     Dosage: 240 MG; ; PO, 240 MG; QD; PO
     Route: 048
     Dates: start: 20101022, end: 20101026

REACTIONS (2)
  - HAEMATEMESIS [None]
  - HAEMATURIA [None]
